FAERS Safety Report 8121146-0 (Version None)
Quarter: 2012Q1

REPORT INFORMATION
  Report Type: 
  Country: None (occurrence: None)
  Receive Date: 20120203
  Receipt Date: 20120124
  Transmission Date: 20120608
  Serious: Yes (Other)
  Sender: FDA-Public Use
  Company Number: 1178189

PATIENT
  Age: 16 Year
  Sex: Male

DRUGS (3)
  1. VITAMIN D [Suspect]
     Indication: OSTEOPOROSIS
     Dosage: 8 UG MICROGRAM(S)
  2. CALCIUM [Concomitant]
  3. PAMIDRONATE DISODIUM [Suspect]
     Indication: OSTEOPOROSIS
     Dosage: 30 MG/M2 MONTHLY, INTRAVENOUS
     Route: 042

REACTIONS (1)
  - NEPHROCALCINOSIS [None]
